FAERS Safety Report 8997418 (Version 2)
Quarter: 2013Q1

REPORT INFORMATION
  Report Type: Spontaneous
  Country: US (occurrence: US)
  Receive Date: 20130104
  Receipt Date: 20130118
  Transmission Date: 20140127
  Serious: No
  Sender: FDA-Public Use
  Company Number: US-PFIZER INC-2013003951

PATIENT
  Age: 43 Year
  Sex: Female
  Weight: 80 kg

DRUGS (3)
  1. XELJANZ [Suspect]
     Indication: RHEUMATOID ARTHRITIS
     Dosage: 5 MG, 2X/DAY
     Route: 048
     Dates: start: 20121122, end: 20121230
  2. MAXALT [Concomitant]
     Indication: HEADACHE
     Dosage: 10 MG,1X/DAY (10 MG Q OF 3DAYS)
  3. XIFAXAN [Concomitant]
     Indication: HEADACHE
     Dosage: 200 MG, 3X/DAY (TID, PRN)

REACTIONS (3)
  - Pyrexia [Recovered/Resolved]
  - Headache [Recovered/Resolved]
  - Confusional state [Recovered/Resolved]
